FAERS Safety Report 8136622 (Version 2)
Quarter: 2012Q4

REPORT INFORMATION
  Report Type: Spontaneous
  Country: US (occurrence: US)
  Receive Date: 20110914
  Receipt Date: 20121218
  Transmission Date: 20130627
  Serious: Yes (Other)
  Sender: FDA-Public Use
  Company Number: PHEH2011US03609

PATIENT
  Age: 48 Year
  Sex: Female

DRUGS (1)
  1. ZOMETA (ZOLEDRONATE) [Suspect]
     Dates: start: 20110613

REACTIONS (2)
  - Osteonecrosis of jaw [Unknown]
  - Tooth abscess [Unknown]
